FAERS Safety Report 8017361-7 (Version None)
Quarter: 2012Q1

REPORT INFORMATION
  Report Type: 
  Country: None (occurrence: None)
  Receive Date: 20120102
  Receipt Date: 20111229
  Transmission Date: 20120608
  Serious: Yes (Other)
  Sender: FDA-Public Use
  Company Number: GB-ROCHE-1026139

PATIENT
  Age: 20 Year
  Sex: Female
  Weight: 67 kg

DRUGS (4)
  1. PREGABALIN [Suspect]
     Indication: PAIN
     Dates: start: 20111025, end: 20111130
  2. ACETAMINOPHEN AND CODEINE PHOSPHATE [Suspect]
     Indication: PAIN
  3. NAPROXEN [Suspect]
     Indication: PAIN
     Route: 048
     Dates: start: 20111027, end: 20111205
  4. NORGESTIMATE AND ETHINYL ESTRADIOL [Suspect]
     Indication: CONTRACEPTION

REACTIONS (2)
  - DRUG INTERACTION [None]
  - PREGNANCY [None]
